FAERS Safety Report 11969156 (Version 1)
Quarter: 2016Q1

REPORT INFORMATION
  Report Type: Spontaneous
  Country: US (occurrence: None)
  Receive Date: 20160127
  Receipt Date: 20160127
  Transmission Date: 20160526
  Serious: Yes (Life-Threatening, Hospitalization)
  Sender: FDA-Public Use
  Company Number: None

PATIENT
  Age: 11 Year
  Sex: Male
  Weight: 31.75 kg

DRUGS (2)
  1. ISOVUE [Suspect]
     Active Substance: IOPAMIDOL
  2. METHIMAZOLE. [Concomitant]
     Active Substance: METHIMAZOLE

REACTIONS (7)
  - Colitis [None]
  - Nausea [None]
  - Vomiting [None]
  - Purulence [None]
  - Asthenia [None]
  - Decreased appetite [None]
  - Contrast media reaction [None]

NARRATIVE: CASE EVENT DATE: 20151230
